FAERS Safety Report 16862818 (Version 1)
Quarter: 2019Q3

REPORT INFORMATION
  Report Type: Spontaneous
  Country: NL (occurrence: NL)
  Receive Date: 20190927
  Receipt Date: 20190927
  Transmission Date: 20191005
  Serious: Yes (Other)
  Sender: FDA-Public Use
  Company Number: NL-MYLANLABS-2019M1089890

PATIENT
  Age: 24 Year
  Sex: Female

DRUGS (3)
  1. PROPRANOLOL [Suspect]
     Active Substance: PROPRANOLOL HYDROCHLORIDE
     Indication: POSTURAL ORTHOSTATIC TACHYCARDIA SYNDROME
     Dosage: UNK,UPTITRATED UP TO 40 MG TID
     Route: 065
  2. FLUDROCORTISONE ACETATE. [Suspect]
     Active Substance: FLUDROCORTISONE ACETATE
     Indication: POSTURAL ORTHOSTATIC TACHYCARDIA SYNDROME
     Dosage: 62.5 MICROGRAM, QD (1 UNK)
     Route: 065
  3. NACL [Suspect]
     Active Substance: SODIUM CHLORIDE
     Indication: POSTURAL ORTHOSTATIC TACHYCARDIA SYNDROME
     Dosage: 300 MILLIGRAM, QD (100 MG, TID)
     Route: 065

REACTIONS (2)
  - Insomnia [Unknown]
  - Off label use [Unknown]
